FAERS Safety Report 5012025-6 (Version None)
Quarter: 2006Q2

REPORT INFORMATION
  Report Type: 
  Country: None (occurrence: None)
  Receive Date: 20060524
  Receipt Date: 20060517
  Transmission Date: 20061013
  Serious: Yes (Death, Hospitalization)
  Sender: FDA-Public Use
  Company Number: 2005-BP-21834RO

PATIENT
  Age: 71 Year
  Sex: Male

DRUGS (9)
  1. METHOTREXATE [Suspect]
     Dosage: 10 MG PER WEEK (1 IN 1 WK), PO
     Route: 048
  2. PREDNISOLONE            (PRDNISOLONE) [Concomitant]
  3. GLIPIZIDE [Concomitant]
  4. FELODIPINE [Concomitant]
  5. BISOPROLOL FUMARATE [Concomitant]
  6. DIGOXIN [Concomitant]
  7. WARFARIN          (WARFARIN) [Concomitant]
  8. LISINORPIL              (LISINOPRIL) [Concomitant]
  9. C0-CODAMOL            (PANADEINE CO) [Concomitant]

REACTIONS (5)
  - GINGIVAL BLEEDING [None]
  - MELAENA [None]
  - MUCOSAL INFLAMMATION [None]
  - PANCYTOPENIA [None]
  - SEPSIS [None]
